FAERS Safety Report 5856902-2 (Version None)
Quarter: 2008Q3

REPORT INFORMATION
  Report Type: 
  Country: None (occurrence: None)
  Receive Date: 20080821
  Receipt Date: 20080821
  Transmission Date: 20090109
  Serious: Yes (Other)
  Sender: FDA-Public Use
  Company Number: None

PATIENT
  Sex: Male
  Weight: 89.92 kg

DRUGS (1)
  1. PENTOTHAL [Suspect]
     Indication: GENERAL ANAESTHESIA
     Dosage: 325 MG ONCE IV
     Route: 042
     Dates: start: 20080820, end: 20080820

REACTIONS (4)
  - ANAESTHETIC COMPLICATION [None]
  - DRUG INEFFECTIVE [None]
  - DYSGEUSIA [None]
  - PHARMACEUTICAL PRODUCT COMPLAINT [None]
